FAERS Safety Report 8708153 (Version 2)
Quarter: 2012Q4

REPORT INFORMATION
  Report Type: 
  Country: US (occurrence: US)
  Receive Date: 20120806
  Receipt Date: 20120910
  Transmission Date: 20130627
  Serious: No
  Sender: FDA-Public Use
  Company Number: US-B.I. PHARMACEUTICALS,INC./RIDGEFIELD-2012-BP-17468BP

PATIENT

DRUGS (4)
  1. TRADJENTA [Suspect]
     Dates: start: 20111128, end: 20111205
  2. ZETIA [Concomitant]
     Indication: HYPERLIPIDAEMIA
     Dosage: 10 mg
  3. ZESTORECTIC [Concomitant]
     Indication: HYPERTENSION
  4. KOVR [Concomitant]
     Indication: BLOOD POTASSIUM DECREASED
     Dosage: 10 mcg

REACTIONS (3)
  - Nausea [Unknown]
  - Blood glucose decreased [Unknown]
  - Dizziness [Unknown]
